FAERS Safety Report 7405694-4 (Version None)
Quarter: 2011Q2

REPORT INFORMATION
  Report Type: 
  Country: None (occurrence: None)
  Receive Date: 20110411
  Receipt Date: 20110329
  Transmission Date: 20111010
  Serious: Yes (Hospitalization)
  Sender: FDA-Public Use
  Company Number: US-ROCHE-713834

PATIENT
  Sex: Male
  Weight: 68.7 kg

DRUGS (11)
  1. PEMETREXED [Suspect]
     Route: 042
     Dates: start: 20100524
  2. PERCOCET [Concomitant]
  3. PHENERGAN HCL [Concomitant]
  4. CARBOPLATIN [Suspect]
     Dosage: DOSE REPORTED AS 6 D/F
     Route: 042
     Dates: start: 20100322
  5. BEVACIZUMAB [Suspect]
     Route: 042
     Dates: start: 20100615
  6. VITAMIN B-12 [Concomitant]
     Dates: start: 20100209
  7. DEXAMETHASONE [Concomitant]
     Dates: start: 20100223
  8. CARBOPLATIN [Suspect]
     Dosage: DOSE: 4.5 DOSE FORM
     Route: 042
     Dates: start: 20100524, end: 20100524
  9. ACID FOLIC [Concomitant]
     Dates: start: 20100315
  10. BEVACIZUMAB [Suspect]
     Route: 042
     Dates: start: 20100322, end: 20100524
  11. PEMETREXED [Suspect]
     Route: 042
     Dates: start: 20100322

REACTIONS (1)
  - HAEMOPTYSIS [None]
